FAERS Safety Report 13349167 (Version 1)
Quarter: 2017Q1

REPORT INFORMATION
  Report Type: Spontaneous
  Country: US (occurrence: US)
  Receive Date: 20170317
  Receipt Date: 20170317
  Transmission Date: 20170428
  Serious: No
  Sender: FDA-Public Use
  Company Number: None

PATIENT
  Age: 36 Year
  Sex: Female
  Weight: 79.45 kg

DRUGS (4)
  1. MIRENA [Suspect]
     Active Substance: LEVONORGESTREL
  2. IRON [Concomitant]
     Active Substance: IRON
  3. STOOL SOFTNER [Concomitant]
  4. MULTIVITAMINS [Concomitant]
     Active Substance: VITAMINS

REACTIONS (6)
  - Abortion induced [None]
  - Asthenia [None]
  - Pregnancy [None]
  - Anaemia [None]
  - Device expulsion [None]
  - Fatigue [None]

NARRATIVE: CASE EVENT DATE: 20160722
